FAERS Safety Report 24189683 (Version 1)
Quarter: 2024Q3

REPORT INFORMATION
  Report Type: Spontaneous
  Country: US (occurrence: US)
  Receive Date: 20240808
  Receipt Date: 20240808
  Transmission Date: 20241016
  Serious: Yes (Other)
  Sender: UNITED THERAPEUTICS
  Company Number: US-UNITED THERAPEUTICS-UNT-2024-023596

PATIENT
  Age: 31 Year
  Sex: Female

DRUGS (16)
  1. REMODULIN [Suspect]
     Active Substance: TREPROSTINIL
     Indication: Pulmonary hypertension
     Dosage: UNK, CONTINUING
  2. REMODULIN [Suspect]
     Active Substance: TREPROSTINIL
     Indication: Pulmonary hypertension
     Dosage: 0.008 ?G/KG, CONTINUING
     Route: 041
  3. REMODULIN [Suspect]
     Active Substance: TREPROSTINIL
     Dosage: 0.034 ?G/KG, CONTINUING
     Route: 041
  4. REMODULIN [Suspect]
     Active Substance: TREPROSTINIL
     Dosage: UNK, CONTINUING
     Route: 041
  5. RIOCIGUAT [Suspect]
     Active Substance: RIOCIGUAT
     Indication: Pulmonary hypertension
     Dosage: UNK
  6. AMBRISENTAN [Suspect]
     Active Substance: AMBRISENTAN
     Indication: Pulmonary hypertension
     Dosage: UNK
  7. SELEXIPAG [Suspect]
     Active Substance: SELEXIPAG
     Indication: Pulmonary hypertension
     Dosage: UNK
  8. TADALAFIL [Concomitant]
     Active Substance: TADALAFIL
     Indication: Product used for unknown indication
     Dosage: 40 MG
  9. RITUXIMAB [Concomitant]
     Active Substance: RITUXIMAB
     Indication: Systemic lupus erythematosus
     Dosage: UNK
  10. NITRIC OXIDE [Concomitant]
     Active Substance: NITRIC OXIDE
     Indication: Product used for unknown indication
     Dosage: 20 PPM
  11. LIDOCAINE [Concomitant]
     Active Substance: LIDOCAINE
     Indication: Analgesic therapy
     Dosage: 5ML INCREMENTS OF 2% OVER 15 MINUTES FOR A TOTAL DOSE OF 400MG
  12. TRANEXAMIC ACID [Concomitant]
     Active Substance: TRANEXAMIC ACID
     Indication: Product used for unknown indication
     Dosage: 1 GRAM (BOLUS)
  13. OXYTOCIN [Concomitant]
     Active Substance: OXYTOCIN
     Indication: Uterine atony
     Dosage: 40 UNITS STARTING CONSTANT RATE OF 100 ML, SUBSEQUENT INCREASES IN THE INFUSION RATE UP TO 250 ML/HR
  14. MISOPROSTOL [Concomitant]
     Active Substance: MISOPROSTOL
     Indication: Uterine atony
     Dosage: 800 MCG
  15. CHLOROPROCAINE HCL [Concomitant]
     Indication: Uterine atony
     Dosage: 5 ML OF 3%
  16. MORPHINE [Concomitant]
     Active Substance: MORPHINE
     Indication: Product used for unknown indication
     Dosage: 3 MG

REACTIONS (10)
  - Pulmonary hypertension [Unknown]
  - Uterine atony [Recovered/Resolved]
  - Maternal exposure during pregnancy [Recovered/Resolved]
  - Dyspnoea exertional [Unknown]
  - Peripheral swelling [Unknown]
  - Nausea [Unknown]
  - Vomiting [Unknown]
  - Premature delivery [Recovered/Resolved]
  - Live birth [Recovered/Resolved]
  - Device placement issue [Recovered/Resolved]
